FAERS Safety Report 17677558 (Version 1)
Quarter: 2020Q2

REPORT INFORMATION
  Report Type: Spontaneous
  Country: US (occurrence: US)
  Receive Date: 20200416
  Receipt Date: 20200416
  Transmission Date: 20200714
  Serious: No
  Sender: FDA-Public Use
  Company Number: US-ROCHE-2375659

PATIENT
  Sex: Female

DRUGS (2)
  1. KADCYLA [Suspect]
     Active Substance: ADO-TRASTUZUMAB EMTANSINE
     Indication: BREAST CANCER
     Dosage: FORM STRENGTH: 100 MG/VL
     Route: 042
     Dates: start: 20190318
  2. KADCYLA [Suspect]
     Active Substance: ADO-TRASTUZUMAB EMTANSINE
     Dosage: FORM STRENGTH: 160 MG/VL
     Route: 042
     Dates: start: 20190318

REACTIONS (3)
  - Neuropathy peripheral [Not Recovered/Not Resolved]
  - Lacrimation increased [Not Recovered/Not Resolved]
  - Constipation [Not Recovered/Not Resolved]
